FAERS Safety Report 12683879 (Version 1)
Quarter: 2016Q3

REPORT INFORMATION
  Report Type: Spontaneous
  Country: None (occurrence: None)
  Receive Date: 20160824
  Receipt Date: 20160824
  Transmission Date: 20161109
  Serious: Yes (Hospitalization, Disabling)
  Sender: FDA-Public Use
  Company Number: None

PATIENT
  Age: 30 Year
  Sex: Male
  Weight: 85.73 kg

DRUGS (1)
  1. HARVONI [Suspect]
     Active Substance: LEDIPASVIR\SOFOSBUVIR

REACTIONS (4)
  - Thrombosis [None]
  - Kidney infection [None]
  - Sepsis [None]
  - Blindness [None]

NARRATIVE: CASE EVENT DATE: 20160815
